FAERS Safety Report 16381987 (Version 2)
Quarter: 2019Q3

REPORT INFORMATION
  Report Type: Spontaneous
  Country: US (occurrence: US)
  Receive Date: 20190603
  Receipt Date: 20190705
  Transmission Date: 20191004
  Serious: Yes (Other)
  Sender: FDA-Public Use
  Company Number: US-BRISTOL-MYERS SQUIBB COMPANY-BMS-2019-053373

PATIENT
  Age: 68 Year
  Sex: Male
  Weight: 102.04 kg

DRUGS (2)
  1. ELIQUIS [Suspect]
     Active Substance: APIXABAN
     Indication: PRODUCT USED FOR UNKNOWN INDICATION
     Dosage: 5 MILLIGRAM (ONE IN THE MORNING AND ONE IN THE EVENING)
     Route: 048
  2. ELIQUIS [Suspect]
     Active Substance: APIXABAN
     Indication: DEEP VEIN THROMBOSIS
     Dosage: 5 MILLIGRAM (TWO IN THE MORNING AND TWO IN THE EVEN FOR THE FIRST SEVEN DAYS)
     Route: 048
     Dates: start: 20190527

REACTIONS (3)
  - Contusion [Unknown]
  - Thrombosis [Unknown]
  - Peripheral swelling [Unknown]

NARRATIVE: CASE EVENT DATE: 20190527
